FAERS Safety Report 8289494-1 (Version None)
Quarter: 2012Q2

REPORT INFORMATION
  Report Type: 
  Country: None (occurrence: None)
  Receive Date: 20120417
  Receipt Date: 20120410
  Transmission Date: 20120825
  Serious: Yes (Hospitalization)
  Sender: FDA-Public Use
  Company Number: FR-ASTELLAS-2012EU002732

PATIENT
  Sex: Male

DRUGS (24)
  1. PROGRAF [Suspect]
     Dosage: 3 DF, OTHER
     Route: 065
     Dates: start: 20081227
  2. PREDNISONE TAB [Concomitant]
     Dosage: 5 MG, UID/QD
     Route: 065
  3. BISOPROLOL FUMARATE [Concomitant]
     Dosage: 2.5 UNK, UID/QD
     Route: 065
  4. PROCORALAN [Concomitant]
     Dosage: 5 MG, BID
     Route: 065
  5. NEXIUM [Concomitant]
     Dosage: 40 MG, UID/QD
     Route: 065
  6. PLAVIX [Concomitant]
     Dosage: 75 MG, UID/QD
     Route: 065
  7. ATORVASTATIN [Concomitant]
     Dosage: 40 MG, UID/QD
     Route: 065
  8. MYFORTIC [Concomitant]
     Dosage: 360 MG, BID
     Route: 065
     Dates: start: 20101223
  9. FERROUS SULFATE TAB [Concomitant]
     Dosage: 80 MG, UID/QD
     Route: 065
     Dates: start: 20101223
  10. PROGRAF [Suspect]
     Dosage: 1 MG, BID
     Route: 065
     Dates: start: 20101223
  11. PROCORALAN [Concomitant]
     Dosage: 5 MG, BID
     Route: 065
     Dates: start: 20101223
  12. MYFORTIC [Concomitant]
     Dosage: 360 MG, BID
     Route: 065
  13. NEXIUM [Concomitant]
     Dosage: 40 MG, UID/QD
     Route: 065
     Dates: start: 20101223
  14. ALLOPURINOL [Concomitant]
     Dosage: 300 MG, UID/QD
  15. FOLIC ACID [Concomitant]
     Dosage: 5 MG, UID/QD
     Route: 065
     Dates: start: 20101223
  16. ATORVASTATIN [Concomitant]
     Dosage: 40 MG, UID/QD
     Route: 065
     Dates: start: 20101223
  17. BISOPROLOL FUMARATE [Concomitant]
     Dosage: 2.5 MG, UID/QD
     Route: 065
     Dates: start: 20101223
  18. ALLOPURINOL [Concomitant]
     Dosage: 300 MG, UID/QD
     Dates: start: 20101223
  19. FOLIC ACID [Concomitant]
     Dosage: 5 MG, UID/QD
     Route: 065
  20. FERROUS SULFATE TAB [Concomitant]
     Dosage: 80 MG, UID/QD
     Route: 065
  21. LASIX [Concomitant]
     Dosage: 0.5 DF, UID/QD
     Route: 065
  22. LASIX [Concomitant]
     Dosage: 500 MG, OTHER
     Route: 065
     Dates: start: 20101223
  23. PLAVIX [Concomitant]
     Dosage: 75 MG, UID/QD
     Route: 065
     Dates: start: 20101223
  24. PREDNISONE TAB [Concomitant]
     Dosage: 5 MG, UID/QD
     Route: 065
     Dates: start: 20101223

REACTIONS (1)
  - TOXICITY TO VARIOUS AGENTS [None]
